FAERS Safety Report 25627760 (Version 1)
Quarter: 2025Q3

REPORT INFORMATION
  Report Type: Spontaneous
  Country: US (occurrence: US)
  Receive Date: 20250731
  Receipt Date: 20250731
  Transmission Date: 20251020
  Serious: Yes (Other)
  Sender: APOTEX
  Company Number: US-APOTEX-2025AP010846

PATIENT

DRUGS (1)
  1. VILAZODONE HYDROCHLORIDE [Suspect]
     Active Substance: VILAZODONE HYDROCHLORIDE
     Indication: Product used for unknown indication
     Route: 048

REACTIONS (10)
  - Suicidal ideation [Recovered/Resolved]
  - Dissociation [Recovered/Resolved]
  - Brain fog [Recovered/Resolved]
  - Muscle twitching [Recovered/Resolved]
  - Emotional disorder [Recovered/Resolved]
  - Disturbance in attention [Recovered/Resolved]
  - Thinking abnormal [Recovered/Resolved]
  - Product substitution issue [Unknown]
  - Headache [Recovered/Resolved]
  - Dizziness [Recovered/Resolved]
